FAERS Safety Report 9675800 (Version 1)
Quarter: 2013Q4

REPORT INFORMATION
  Report Type: Spontaneous
  Country: US (occurrence: US)
  Receive Date: 20131107
  Receipt Date: 20131107
  Transmission Date: 20140711
  Serious: Yes (Hospitalization)
  Sender: FDA-Public Use
  Company Number: US-BRISTOL-MYERS SQUIBB COMPANY-19680859

PATIENT
  Age: 56 Year
  Sex: Female
  Weight: 76.19 kg

DRUGS (11)
  1. BYDUREON [Suspect]
     Indication: TYPE 2 DIABETES MELLITUS
     Route: 058
     Dates: end: 20131024
  2. AMLODIPINE [Concomitant]
  3. LEVEMIR [Concomitant]
     Dosage: 1DF;40 UNITS NOS
  4. LIPITOR [Concomitant]
  5. LISINOPRIL [Concomitant]
  6. HYDROCHLOROTHIAZIDE [Concomitant]
  7. MAGNESIUM CHLORIDE [Concomitant]
  8. METFORMIN [Concomitant]
  9. METOPROLOL [Concomitant]
  10. SPIRONOLACTONE [Concomitant]
     Dosage: 1DF:25 UNITS NOS
  11. VITAMIN B [Concomitant]

REACTIONS (1)
  - Pancreatitis acute [Recovered/Resolved]
